FAERS Safety Report 18132118 (Version 1)
Quarter: 2020Q3

REPORT INFORMATION
  Report Type: Spontaneous
  Country: US (occurrence: US)
  Receive Date: 20200811
  Receipt Date: 20200811
  Transmission Date: 20201103
  Serious: Yes (Hospitalization)
  Sender: FDA-Public Use
  Company Number: US-LUPIN PHARMACEUTICALS INC.-2020-04388

PATIENT
  Age: 64 Year
  Sex: Female

DRUGS (3)
  1. LEVETIRACETAM. [Concomitant]
     Active Substance: LEVETIRACETAM
     Indication: SEIZURE
     Dosage: 500 MILLIGRAM, QD (EXTENDED?RELEASE; AT BEDTIME)
     Route: 065
  2. LAMOTRIGINE. [Suspect]
     Active Substance: LAMOTRIGINE
     Dosage: 250 MILLIGRAM, BID
     Route: 065
  3. LAMOTRIGINE. [Suspect]
     Active Substance: LAMOTRIGINE
     Indication: PARTIAL SEIZURES
     Dosage: 300 MILLIGRAM, BID,INITIAL DOSE NOT STATED;
     Route: 065

REACTIONS (5)
  - Ataxia [Unknown]
  - Diplopia [Unknown]
  - Dizziness [Unknown]
  - Toxicity to various agents [Unknown]
  - Asthenia [Unknown]
